FAERS Safety Report 4937482-2 (Version None)
Quarter: 2006Q1

REPORT INFORMATION
  Report Type: 
  Country: None (occurrence: None)
  Receive Date: 20060309
  Receipt Date: 20060130
  Transmission Date: 20060701
  Serious: Yes (Other)
  Sender: FDA-Public Use
  Company Number: PHEH2006US01532

PATIENT
  Age: 36 Year
  Sex: Female
  Weight: 63.945 kg

DRUGS (1)
  1. VIVELLE-DOT [Suspect]
     Indication: HORMONE REPLACEMENT THERAPY
     Dosage: 0.1 MG/DAY, TWICE WEEKLY
     Route: 062
     Dates: start: 20031001, end: 20060205

REACTIONS (5)
  - DRUG INEFFECTIVE [None]
  - HEPATIC ADENOMA [None]
  - MIGRAINE [None]
  - NAUSEA [None]
  - PAIN [None]
